FAERS Safety Report 16084229 (Version 1)
Quarter: 2019Q1

REPORT INFORMATION
  Report Type: Spontaneous
  Country: US (occurrence: US)
  Receive Date: 20190318
  Receipt Date: 20190318
  Transmission Date: 20190418
  Serious: No
  Sender: FDA-Public Use
  Company Number: US-PFIZER INC-2019116450

PATIENT

DRUGS (2)
  1. EUCRISA [Suspect]
     Active Substance: CRISABOROLE
     Indication: PRURITUS
     Dosage: UNK
  2. EUCRISA [Suspect]
     Active Substance: CRISABOROLE
     Indication: SKIN DISORDER

REACTIONS (3)
  - Drug effect incomplete [Unknown]
  - Application site pain [Unknown]
  - Application site erythema [Unknown]

NARRATIVE: CASE EVENT DATE: 201903
